FAERS Safety Report 5642668-8 (Version None)
Quarter: 2008Q1

REPORT INFORMATION
  Report Type: 
  Country: None (occurrence: None)
  Receive Date: 20080226
  Receipt Date: 20080211
  Transmission Date: 20080703
  Serious: Yes (Other)
  Sender: FDA-Public Use
  Company Number: S08-DEN-00670-01

PATIENT
  Age: 38 Year
  Sex: Male

DRUGS (2)
  1. CITALOPRAM HYDROBROMIDE [Suspect]
     Indication: OBSESSIVE-COMPULSIVE DISORDER
     Dosage: 40 MG QD PO
     Route: 048
     Dates: start: 19960104
  2. CITALOPRAM HYDROBROMIDE [Suspect]
     Indication: OBSESSIVE-COMPULSIVE DISORDER
     Dosage: 60 MG QD PO
     Route: 048
     Dates: end: 20080131

REACTIONS (4)
  - ATRIAL SEPTAL DEFECT [None]
  - EJECTION FRACTION DECREASED [None]
  - GENERALISED OEDEMA [None]
  - PULMONARY OEDEMA [None]
